FAERS Safety Report 21635337 (Version 2)
Quarter: 2023Q1

REPORT INFORMATION
  Report Type: Spontaneous
  Country: FR (occurrence: FR)
  Receive Date: 20221123
  Receipt Date: 20230104
  Transmission Date: 20230417
  Serious: Yes (Other)
  Sender: FDA-Public Use
  Company Number: FR-AMERICAN REGENT INC-2022003384

PATIENT
  Age: 31 Year
  Sex: Female

DRUGS (1)
  1. VENOFER [Suspect]
     Active Substance: IRON SUCROSE
     Indication: Anaemia
     Dosage: 200 MILLIGRAM, 1 IN 1 TOTAL
     Dates: start: 20221006, end: 20221006

REACTIONS (1)
  - Porphyria non-acute [Recovered/Resolved]

NARRATIVE: CASE EVENT DATE: 20221008
